FAERS Safety Report 5086997-8 (Version None)
Quarter: 2006Q3

REPORT INFORMATION
  Report Type: 
  Country: None (occurrence: None)
  Receive Date: 20060818
  Receipt Date: 20060807
  Transmission Date: 20061208
  Serious: Yes (Other)
  Sender: FDA-Public Use
  Company Number: 2005078588

PATIENT
  Age: 49 Year
  Sex: Female
  Weight: 51.7101 kg

DRUGS (9)
  1. DILANTIN KAPSEAL [Suspect]
     Indication: CONVULSION
     Dosage: 100MG AM; 230MG PM. (2 IN 1 D), ORAL
     Route: 048
  2. DILANTIN [Suspect]
     Indication: CONVULSION
     Dosage: 50MG NOON; (1 IN 1 D)
  3. CITRACAL (CALCIUM CITRATE) [Suspect]
     Indication: MINERAL SUPPLEMENTATION
  4. MULTIVITAMIN [Suspect]
     Indication: ILL-DEFINED DISORDER
     Dosage: ORAL
     Route: 048
  5. ALL OTHER THERAPEUTIC PRODUCTS [Concomitant]
  6. MYSOLINE [Concomitant]
  7. VITAMIN B6 [Concomitant]
  8. VITAMIN E [Concomitant]
  9. GLUCOSAMINE W/CHONDROITIN SULFATES (ASCORBIC ACID, CHONDROITIN SULFATE [Concomitant]

REACTIONS (8)
  - ANTICONVULSANT DRUG LEVEL INCREASED [None]
  - ARTHRITIS [None]
  - CONVULSION [None]
  - DIZZINESS [None]
  - DRUG EXPOSURE DURING PREGNANCY [None]
  - DRUG INEFFECTIVE [None]
  - DRUG INTERACTION [None]
  - PHARMACEUTICAL PRODUCT COMPLAINT [None]
